FAERS Safety Report 19484385 (Version 1)
Quarter: 2021Q3

REPORT INFORMATION
  Report Type: Other
  Country: US (occurrence: US)
  Receive Date: 20210701
  Receipt Date: 20210701
  Transmission Date: 20211014
  Serious: No
  Sender: FDA-Public Use
  Company Number: US-ROCHE-2612448

PATIENT
  Age: 49 Year
  Sex: Female

DRUGS (8)
  1. ESCITALOPRAM [Concomitant]
     Active Substance: ESCITALOPRAM OXALATE
  2. ARIPIPRAZOLE. [Concomitant]
     Active Substance: ARIPIPRAZOLE
  3. BENZTROPINE. [Concomitant]
     Active Substance: BENZTROPINE
  4. CLONAZEPAM. [Suspect]
     Active Substance: CLONAZEPAM
     Indication: MOVEMENT DISORDER
     Route: 065
  5. BUPROPION. [Concomitant]
     Active Substance: BUPROPION
  6. AMANTADINE. [Concomitant]
     Active Substance: AMANTADINE HYDROCHLORIDE
  7. LITHIUM. [Concomitant]
     Active Substance: LITHIUM
  8. QUETIAPINE. [Concomitant]
     Active Substance: QUETIAPINE

REACTIONS (3)
  - Intentional product use issue [Unknown]
  - No adverse event [Unknown]
  - Off label use [Unknown]
